FAERS Safety Report 8632805 (Version 5)
Quarter: 2012Q4

REPORT INFORMATION
  Report Type: Report from Study
  Country: JP (occurrence: JP)
  Receive Date: 20120625
  Receipt Date: 20121121
  Transmission Date: 20130627
  Serious: Yes (Other)
  Sender: FDA-Public Use
  Company Number: JP-B.I. PHARMACEUTICALS,INC./RIDGEFIELD-2012-BP-13845NB

PATIENT
  Age: 84 Year
  Sex: Female
  Weight: 38 kg

DRUGS (6)
  1. PRAZAXA [Suspect]
     Indication: THROMBOSIS PROPHYLAXIS
     Dosage: 150 mg
     Route: 048
     Dates: start: 20120121
  2. PLAVIX [Suspect]
     Dosage: 75 mg
     Route: 048
     Dates: start: 20100914
  3. NITOROL R [Concomitant]
     Dosage: 40 mg
     Route: 048
  4. MICARDIS [Concomitant]
     Dosage: 40 mg
     Route: 048
  5. HALCION [Concomitant]
     Dosage: 0.125 mg
     Route: 048
  6. CELECOX [Concomitant]
     Dosage: 200 mg
     Route: 048

REACTIONS (4)
  - Cardiac failure [Recovered/Resolved]
  - Gastrooesophageal reflux disease [Recovered/Resolved]
  - Gastritis [Recovered/Resolved]
  - Blood urea increased [Recovered/Resolved]
